FAERS Safety Report 16882802 (Version 5)
Quarter: 2022Q1

REPORT INFORMATION
  Report Type: Spontaneous
  Country: PL (occurrence: PL)
  Receive Date: 20191003
  Receipt Date: 20220321
  Transmission Date: 20220424
  Serious: Yes (Hospitalization, Other)
  Sender: FDA-Public Use
  Company Number: PL-ALVOGEN-2019-ALVOGEN-101431

PATIENT
  Age: 80 Year
  Sex: Female

DRUGS (13)
  1. METOPROLOL [Suspect]
     Active Substance: METOPROLOL
     Indication: Pulmonary hypertension
     Dosage: 50 MILLIGRAM, ONCE A DAY
     Route: 065
  2. SILDENAFIL [Suspect]
     Active Substance: SILDENAFIL
     Indication: Pulmonary hypertension
     Dosage: 25 MILLIGRAM, 3 TIMES A DAY
     Route: 065
  3. SILDENAFIL [Suspect]
     Active Substance: SILDENAFIL
     Dosage: 50 MILLIGRAM, ONCE A DAY
     Route: 065
  4. VALSARTAN [Suspect]
     Active Substance: VALSARTAN
     Indication: Pulmonary hypertension
     Dosage: 80 MILLIGRAM, ONCE A DAY
     Route: 065
  5. SPIRONOLACTONE [Suspect]
     Active Substance: SPIRONOLACTONE
     Indication: Diuretic therapy
     Dosage: 25 MILLIGRAM, ONCE A DAY
     Route: 065
  6. SPIRONOLACTONE [Suspect]
     Active Substance: SPIRONOLACTONE
     Indication: Pulmonary hypertension
     Dosage: 50 MILLIGRAM, ONCE A DAY
     Route: 065
  7. TORSEMIDE [Suspect]
     Active Substance: TORSEMIDE
     Indication: Diuretic therapy
     Dosage: 10 MILLIGRAM, ONCE A DAY
     Route: 065
     Dates: start: 201705
  8. TORSEMIDE [Suspect]
     Active Substance: TORSEMIDE
     Indication: Pulmonary hypertension
     Dosage: 20 MILLIGRAM
     Route: 065
  9. ACENOCOUMAROL [Suspect]
     Active Substance: ACENOCOUMAROL
     Indication: Pulmonary hypertension
     Dosage: UNK
     Route: 065
  10. ASPIRIN [Concomitant]
     Active Substance: ASPIRIN
     Indication: Product used for unknown indication
     Dosage: UNK
     Route: 065
  11. RIOCIGUAT [Concomitant]
     Active Substance: RIOCIGUAT
     Indication: Pulmonary hypertension
     Dosage: UNK,DOSE WAS GRADUALLY INCREASED
     Route: 065
     Dates: start: 201807
  12. RIOCIGUAT [Concomitant]
     Active Substance: RIOCIGUAT
     Dosage: 2.5 MILLIGRAM, 3 TIMES A DAY
     Route: 065
  13. ILOPROST [Concomitant]
     Active Substance: ILOPROST
     Indication: Product used for unknown indication
     Dosage: UNK

REACTIONS (10)
  - Left-to-right cardiac shunt [Recovered/Resolved]
  - Condition aggravated [Recovered/Resolved]
  - Pulmonary hypertension [Recovering/Resolving]
  - Pulmonary vascular resistance abnormality [Unknown]
  - Dyspnoea exertional [Recovering/Resolving]
  - Bradycardia [Unknown]
  - Hypotension [Unknown]
  - Therapeutic product effect incomplete [Unknown]
  - Vascular resistance pulmonary decreased [Unknown]
  - Off label use [Unknown]

NARRATIVE: CASE EVENT DATE: 20170101
